FAERS Safety Report 16345741 (Version 2)
Quarter: 2019Q2

REPORT INFORMATION
  Report Type: Other
  Country: BG (occurrence: BG)
  Receive Date: 20190523
  Receipt Date: 20190621
  Transmission Date: 20190711
  Serious: Yes (Hospitalization)
  Sender: FDA-Public Use
  Company Number: BG-CELLTRION INC.-2019BG021189

PATIENT

DRUGS (18)
  1. TRAMADOL. [Concomitant]
     Active Substance: TRAMADOL
     Dosage: UNK
     Route: 065
     Dates: start: 20180405, end: 20190305
  2. DEXKETOPROFEN [Concomitant]
     Active Substance: DEXKETOPROFEN
     Indication: PAIN
     Dosage: ONGOING = NOT CHECKED
     Route: 065
     Dates: start: 20190305, end: 20190315
  3. CAPECITABINE. [Suspect]
     Active Substance: CAPECITABINE
     Indication: HER-2 POSITIVE BREAST CANCER
     Dosage: 2500 MG PER DAY (ON 11/FEB/2019, RECEIVED MOST RECENT DOSE OF CAPECITABINE)
     Route: 048
     Dates: start: 20181213
  4. BUPRENORPHINE. [Concomitant]
     Active Substance: BUPRENORPHINE
     Indication: PAIN
     Dosage: UNK
     Route: 065
     Dates: start: 20190305
  5. OLSART [Concomitant]
     Dosage: UNK
     Route: 065
     Dates: start: 20140615
  6. TRAMADOL. [Concomitant]
     Active Substance: TRAMADOL
     Dosage: UNK
     Route: 065
     Dates: start: 20180405
  7. DEXAMETHASONE. [Concomitant]
     Active Substance: DEXAMETHASONE
     Indication: PAIN
     Dosage: ONGOING = NOT CHECKED
     Route: 065
     Dates: start: 20190315
  8. PREDNISOLON [PREDNISOLONE] [Concomitant]
     Active Substance: PREDNISOLONE
     Dosage: ONGOING = CHECKED
     Route: 065
     Dates: start: 20000615
  9. TRASTUZUMAB (UNKNOWN) [Suspect]
     Active Substance: TRASTUZUMAB
     Indication: HER-2 POSITIVE BREAST CANCER
     Dosage: 300 MG, EVERY 4 WEEKS, (ON 11/FEB/2019, RECEIVED MOST RECENT DOSE OF TRASTUZUMAB)
     Route: 041
     Dates: start: 20180720
  10. TRASTUZUMAB (UNKNOWN) [Suspect]
     Active Substance: TRASTUZUMAB
     Dosage: 300 MG, EVERY 4 WEEKS
     Route: 042
     Dates: start: 20180720
  11. NEURONTIN [Concomitant]
     Active Substance: GABAPENTIN
     Indication: PAIN
     Dosage: UNK
     Route: 065
     Dates: start: 20190305, end: 20190315
  12. MANITOL [Concomitant]
     Active Substance: MANNITOL
     Indication: PAIN
     Dosage: UNK
     Route: 065
     Dates: start: 20190305, end: 20190315
  13. METRONIDAZOLE. [Concomitant]
     Active Substance: METRONIDAZOLE
     Indication: INGUINAL HERNIA
     Dosage: ONGOING = NOT CHECKED
     Route: 065
     Dates: start: 20190211, end: 20190213
  14. TAXOTERE [Suspect]
     Active Substance: DOCETAXEL
     Indication: HER-2 POSITIVE BREAST CANCER
     Dosage: 80 MG, EVERY 4 WEEKS (ON 14/NOV/2018, RECEIVED MOST RECENT DOSE OF DOCETAXEL)
     Route: 042
     Dates: start: 20180720
  15. MORFIN [MORPHINE] [Concomitant]
     Indication: PAIN
     Dosage: ONGOING = NOT CHECKED
     Route: 065
     Dates: start: 20190305, end: 20190315
  16. ASPIRIN [ACETYLSALICYLIC ACID] [Concomitant]
     Active Substance: ASPIRIN
     Dosage: UNK
     Route: 065
     Dates: start: 20140615
  17. DEGAN [Concomitant]
     Active Substance: METOCLOPRAMIDE HYDROCHLORIDE
     Indication: PAIN
     Dosage: UNK
     Route: 065
     Dates: start: 20190305, end: 20190315
  18. FRAXIPARIN [Concomitant]
     Active Substance: NADROPARIN CALCIUM
     Indication: INGUINAL HERNIA
     Dosage: UNK
     Route: 065
     Dates: start: 20190211, end: 20190213

REACTIONS (3)
  - Inguinal hernia [Recovered/Resolved]
  - Weight decreased [Recovering/Resolving]
  - Product use issue [Unknown]

NARRATIVE: CASE EVENT DATE: 20181213
